FAERS Safety Report 22090257 (Version 3)
Quarter: 2023Q2

REPORT INFORMATION
  Report Type: Spontaneous
  Country: DE (occurrence: DE)
  Receive Date: 20230313
  Receipt Date: 20230508
  Transmission Date: 20230721
  Serious: Yes (Life-Threatening, Hospitalization, Other)
  Sender: FDA-Public Use
  Company Number: DE-BRISTOL-MYERS SQUIBB COMPANY-2023-030389

PATIENT
  Age: 73 Year
  Sex: Female
  Weight: 96 kg

DRUGS (3)
  1. ELIQUIS [Suspect]
     Active Substance: APIXABAN
     Indication: Embolism venous
     Dates: start: 202011, end: 20230206
  2. ROSUVASTATIN [Concomitant]
     Active Substance: ROSUVASTATIN
     Indication: Blood pressure increased
  3. TORSEMIDE [Concomitant]
     Active Substance: TORSEMIDE
     Indication: Blood pressure increased

REACTIONS (5)
  - Haemorrhage [Unknown]
  - Hepatic cyst [Unknown]
  - Biliary obstruction [Recovering/Resolving]
  - Haemorrhagic hepatic cyst [Recovering/Resolving]
  - Renal impairment [Unknown]

NARRATIVE: CASE EVENT DATE: 20230101
